FAERS Safety Report 7307588-1 (Version None)
Quarter: 2011Q1

REPORT INFORMATION
  Report Type: 
  Country: None (occurrence: None)
  Receive Date: 20110211
  Receipt Date: 20110131
  Transmission Date: 20110831
  Serious: Yes (Death, Life-Threatening, Hospitalization)
  Sender: FDA-Public Use
  Company Number: TAJPN-11-0075

PATIENT
  Age: 75 Year
  Sex: Female
  Weight: 51 kg

DRUGS (15)
  1. COBALOKININ (LOXOPROFEN SODIUM) [Concomitant]
  2. TAKEPRON (LANSOPRAZOLE) [Concomitant]
  3. MORPHINE SULFATE INJ [Concomitant]
  4. GASPORT (FAMOTIDINE) [Concomitant]
  5. KYTRIL [Concomitant]
  6. GASTER (FAMOTIDINE) [Concomitant]
  7. DIAINAMIX (THIAMINE DISULFIDE) [Concomitant]
  8. ASCORBIC ACID [Concomitant]
  9. MS-TWICELON [Concomitant]
  10. ABRAXANE [Suspect]
     Indication: BREAST CANCER
     Dosage: 300 MG
     Dates: start: 20101222, end: 20101222
  11. MAGMITT [Concomitant]
  12. PROHEPARUM (PROHEPAR) [Concomitant]
  13. NEUZELIN (DOMPERIDONE) [Concomitant]
  14. KENALOG [Concomitant]
  15. DUROTEP (FENTANYL) [Concomitant]

REACTIONS (23)
  - URINE OUTPUT DECREASED [None]
  - PLEURAL EFFUSION [None]
  - ALOPECIA [None]
  - WHITE BLOOD CELL COUNT DECREASED [None]
  - NAUSEA [None]
  - BLOOD ALBUMIN DECREASED [None]
  - PERIPHERAL COLDNESS [None]
  - VOMITING [None]
  - CHOKING [None]
  - OEDEMA PERIPHERAL [None]
  - DISSEMINATED INTRAVASCULAR COAGULATION [None]
  - BLOOD SODIUM DECREASED [None]
  - BLOOD UREA INCREASED [None]
  - RESPIRATORY FAILURE [None]
  - DEHYDRATION [None]
  - DIARRHOEA [None]
  - HYPERKALAEMIA [None]
  - BREAST CANCER RECURRENT [None]
  - CARDIO-RESPIRATORY ARREST [None]
  - NEOPLASM MALIGNANT [None]
  - DEPRESSED LEVEL OF CONSCIOUSNESS [None]
  - MUCOSAL INFLAMMATION [None]
  - NO THERAPEUTIC RESPONSE [None]
